FAERS Safety Report 10440170 (Version 1)
Quarter: 2014Q3

REPORT INFORMATION
  Report Type: Spontaneous
  Country: GB (occurrence: None)
  Receive Date: 20140905
  Receipt Date: 20140905
  Transmission Date: 20150326
  Serious: Yes (Hospitalization)
  Sender: FDA-Public Use
  Company Number: 2516310

PATIENT
  Age: 36 Year
  Sex: Female
  Weight: 50 kg

DRUGS (2)
  1. DACARBAZINE. [Suspect]
     Active Substance: DACARBAZINE
     Indication: METASTASES TO LIVER
     Dosage: FIRST CYCLE
     Dates: start: 20140606
  2. DACARBAZINE. [Suspect]
     Active Substance: DACARBAZINE
     Indication: MALIGNANT MELANOMA
     Dosage: FIRST CYCLE
     Dates: start: 20140606

REACTIONS (5)
  - Blood bilirubin increased [None]
  - Jaundice [None]
  - Blood alkaline phosphatase abnormal [None]
  - Alanine aminotransferase abnormal [None]
  - Hepatotoxicity [None]

NARRATIVE: CASE EVENT DATE: 20140629
